FAERS Safety Report 25495207 (Version 1)
Quarter: 2025Q2

REPORT INFORMATION
  Report Type: Spontaneous
  Country: CA (occurrence: CA)
  Receive Date: 20250630
  Receipt Date: 20250630
  Transmission Date: 20250716
  Serious: Yes (Other)
  Sender: PFIZER
  Company Number: CA-PFIZER INC-202500057586

PATIENT
  Age: 71 Year
  Sex: Male
  Weight: 68.1 kg

DRUGS (1)
  1. IXIFI [Suspect]
     Active Substance: INFLIXIMAB-QBTX
     Indication: Colitis ulcerative
     Route: 042

REACTIONS (2)
  - Nephritis [Unknown]
  - Off label use [Unknown]

NARRATIVE: CASE EVENT DATE: 20250616
